FAERS Safety Report 15002453 (Version 1)
Quarter: 2018Q2

REPORT INFORMATION
  Report Type: Spontaneous
  Country: JP (occurrence: JP)
  Receive Date: 20180612
  Receipt Date: 20180612
  Transmission Date: 20180711
  Serious: Yes (Life-Threatening, Hospitalization, Other)
  Sender: FDA-Public Use
  Company Number: JP-MYLANLABS-2018M1039542

PATIENT
  Age: 57 Year
  Sex: Male

DRUGS (2)
  1. THIAMINE. [Concomitant]
     Active Substance: THIAMINE
     Indication: ALCOHOL WITHDRAWAL SYNDROME
     Route: 050
  2. MIDAZOLAM [Suspect]
     Active Substance: MIDAZOLAM HYDROCHLORIDE
     Indication: ALCOHOL WITHDRAWAL SYNDROME
     Route: 050

REACTIONS (1)
  - Circulatory collapse [Unknown]
